FAERS Safety Report 10905873 (Version 1)
Quarter: 2015Q1

REPORT INFORMATION
  Report Type: Report from Study
  Country: CN (occurrence: CN)
  Receive Date: 20150311
  Receipt Date: 20150311
  Transmission Date: 20150721
  Serious: Yes (Death, Hospitalization, Other)
  Sender: FDA-Public Use
  Company Number: CN-SHIRE-CN201501912

PATIENT
  Age: 41 Year
  Sex: Male
  Weight: 55 kg

DRUGS (2)
  1. METOPROLOL [Concomitant]
     Active Substance: METOPROLOL
     Indication: HYPERTENSION
     Dosage: 1/2 TABLET PER DAY
     Route: 065
  2. 405 (LANTHANUM CARBONATE) [Suspect]
     Active Substance: LANTHANUM CARBONATE
     Indication: HYPOPHOSPHATAEMIA
     Dosage: 3000 MG, UNKNOWN
     Route: 048
     Dates: start: 20141203, end: 20150207

REACTIONS (3)
  - Altered state of consciousness [Unknown]
  - Circulatory collapse [Fatal]
  - Coma [Unknown]

NARRATIVE: CASE EVENT DATE: 201502
